FAERS Safety Report 17327453 (Version 1)
Quarter: 2020Q1

REPORT INFORMATION
  Report Type: Spontaneous
  Country: GB (occurrence: GB)
  Receive Date: 20200127
  Receipt Date: 20200127
  Transmission Date: 20200409
  Serious: Yes (Other)
  Sender: FDA-Public Use
  Company Number: GB-SAMSUNG BIOEPIS-SB-2020-01599

PATIENT
  Age: 49 Year
  Sex: Female

DRUGS (1)
  1. IMRALDI [Suspect]
     Active Substance: ADALIMUMAB
     Indication: PSORIATIC ARTHROPATHY
     Route: 058
     Dates: start: 201908

REACTIONS (6)
  - Conjunctival haemorrhage [Unknown]
  - Psoriasis [Unknown]
  - Furuncle [Unknown]
  - Dry skin [Unknown]
  - Gingival hypertrophy [Unknown]
  - Headache [Unknown]
